FAERS Safety Report 8418603-6 (Version None)
Quarter: 2012Q2

REPORT INFORMATION
  Report Type: 
  Country: None (occurrence: None)
  Receive Date: 20120607
  Receipt Date: 20120524
  Transmission Date: 20120825
  Serious: Yes (Death, Hospitalization)
  Sender: FDA-Public Use
  Company Number: US-BAYER-2012-055724

PATIENT
  Age: 43 Year
  Sex: Female

DRUGS (1)
  1. INTERFERON BETA-1B [Suspect]
     Indication: MULTIPLE SCLEROSIS
     Route: 065

REACTIONS (14)
  - OPTIC ATROPHY [None]
  - SPINAL CORD INJURY CERVICAL [None]
  - MYELITIS TRANSVERSE [None]
  - DEMYELINATION [None]
  - LOSS OF PROPRIOCEPTION [None]
  - DECREASED VIBRATORY SENSE [None]
  - DEATH [None]
  - SENSORY DISTURBANCE [None]
  - RESPIRATORY FAILURE [None]
  - QUADRIPLEGIA [None]
  - NEUROMYELITIS OPTICA [None]
  - PUPILLARY LIGHT REFLEX TESTS ABNORMAL [None]
  - CRANIAL NERVE PALSIES MULTIPLE [None]
  - HYPOTONIA [None]
